FAERS Safety Report 18359373 (Version 2)
Quarter: 2022Q3

REPORT INFORMATION
  Report Type: Report from Study
  Country: CA (occurrence: CA)
  Receive Date: 20201008
  Receipt Date: 20220818
  Transmission Date: 20221027
  Serious: Yes (Other)
  Sender: FDA-Public Use
  Company Number: None

PATIENT
  Age: 72 Year
  Sex: Female

DRUGS (3)
  1. CARBOPLATIN [Suspect]
     Active Substance: CARBOPLATIN
     Indication: Product used for unknown indication
     Dosage: SOLUTION INTRAVENOUS
  2. PEMBROLIZUMAB [Suspect]
     Active Substance: PEMBROLIZUMAB
     Indication: Non-small cell lung cancer metastatic
     Dosage: FREQUENCY: CYCLICAL
     Route: 042
  3. ALIMTA [Suspect]
     Active Substance: PEMETREXED DISODIUM
     Indication: Product used for unknown indication
     Dosage: DOSAGE FORM: POWDER FOR SOLUTION INTRAVENOUS, CYCLICAL
     Route: 042

REACTIONS (13)
  - Alanine aminotransferase increased [Recovered/Resolved]
  - Anaemia [Recovered/Resolved]
  - Inappropriate schedule of product administration [Unknown]
  - Aspartate aminotransferase increased [Recovered/Resolved]
  - Asthenia [Recovered/Resolved]
  - Fatigue [Recovered/Resolved]
  - Haematotoxicity [Recovered/Resolved]
  - Hepatitis [Recovered/Resolved]
  - Hypercalcaemia [Recovered/Resolved]
  - Lipase increased [Recovered/Resolved]
  - Nausea [Recovered/Resolved]
  - Vomiting [Recovered/Resolved]
  - Pneumonia [Recovered/Resolved]
